FAERS Safety Report 7552134-0 (Version None)
Quarter: 2011Q2

REPORT INFORMATION
  Report Type: 
  Country: None (occurrence: None)
  Receive Date: 20110616
  Receipt Date: 20110603
  Transmission Date: 20111010
  Serious: Yes (Other)
  Sender: FDA-Public Use
  Company Number: PHHY2011BR49547

PATIENT
  Sex: Female

DRUGS (7)
  1. CILOSTAZOL [Suspect]
  2. DIOCROMIL [Suspect]
  3. INDAPAMIDE [Suspect]
  4. LIPLESS [Suspect]
  5. METFORMIN HCL [Suspect]
  6. NAPRIX A [Suspect]
  7. DIOVAN [Suspect]

REACTIONS (2)
  - CEREBROVASCULAR ACCIDENT [None]
  - HYPERTENSION [None]
